FAERS Safety Report 4336347-7 (Version None)
Quarter: 2004Q2

REPORT INFORMATION
  Report Type: 
  Country: None (occurrence: None)
  Receive Date: 20040407
  Receipt Date: 20040323
  Transmission Date: 20050107
  Serious: Yes (Other)
  Sender: FDA-Public Use
  Company Number: USA030741310

PATIENT
  Age: 74 Year
  Sex: Female
  Weight: 50 kg

DRUGS (9)
  1. FORTEO [Suspect]
     Indication: OSTEOPOROSIS
     Dosage: 20 UG/L DAY
     Dates: start: 20030707
  2. ZOLOFT [Concomitant]
  3. BUSPAR [Concomitant]
  4. NEURONTIN [Concomitant]
  5. MOTRIN [Concomitant]
  6. BEXTRA [Concomitant]
  7. CALCIUM WITH VITAMIN D [Concomitant]
  8. MULTIVITAMIN [Concomitant]
  9. EXTRA STRENGTH TYLENOL [Concomitant]

REACTIONS (6)
  - FALL [None]
  - HEADACHE [None]
  - HYPOAESTHESIA [None]
  - PAIN [None]
  - PHARMACEUTICAL PRODUCT COMPLAINT [None]
  - TRANSIENT ISCHAEMIC ATTACK [None]
